FAERS Safety Report 7959601-6 (Version None)
Quarter: 2011Q4

REPORT INFORMATION
  Report Type: 
  Country: None (occurrence: None)
  Receive Date: 20111206
  Receipt Date: 20111129
  Transmission Date: 20120403
  Serious: Yes (Other)
  Sender: FDA-Public Use
  Company Number: PL-TEVA-311866ISR

PATIENT
  Sex: Female
  Weight: 14 kg

DRUGS (2)
  1. CECLOR [Suspect]
     Indication: TONSILLITIS
     Dosage: 750 ; MG/5ML
     Route: 048
     Dates: start: 20111005, end: 20111009
  2. COLOFLOR [Concomitant]
     Indication: ANTIBIOTIC THERAPY
     Route: 048
     Dates: start: 20111005, end: 20111009

REACTIONS (3)
  - ERYTHEMA [None]
  - RASH [None]
  - LOSS OF CONSCIOUSNESS [None]
